FAERS Safety Report 6785180-5 (Version None)
Quarter: 2010Q2

REPORT INFORMATION
  Report Type: 
  Country: None (occurrence: None)
  Receive Date: 20100621
  Receipt Date: 20100621
  Transmission Date: 20101027
  Serious: No
  Sender: FDA-Public Use
  Company Number: None

PATIENT
  Age: 78 Year
  Sex: Male
  Weight: 124.2856 kg

DRUGS (2)
  1. DORZOLAMIDE [Suspect]
     Indication: GLAUCOMA
     Dosage: 1 DROP TWICE A DAY OPHTHALMIC
     Route: 047
     Dates: start: 20100301, end: 20100316
  2. HCL-TIMOLOL 6.8MG/ML HI-TECH PHARMACAL [Suspect]
     Indication: GLAUCOMA
     Dosage: 1 DROP TWICE A DAY OPHTHALMIC
     Route: 047
     Dates: start: 20100301, end: 20100316

REACTIONS (3)
  - EYE IRRITATION [None]
  - PAIN [None]
  - VISION BLURRED [None]
